FAERS Safety Report 9719703 (Version 1)
Quarter: 2013Q4

REPORT INFORMATION
  Report Type: Report from Study
  Country: US (occurrence: US)
  Receive Date: 20131128
  Receipt Date: 20131128
  Transmission Date: 20140711
  Serious: Yes (Other)
  Sender: FDA-Public Use
  Company Number: US-ROCHE-1305616

PATIENT
  Sex: Male

DRUGS (9)
  1. TOCILIZUMAB [Suspect]
     Indication: RHEUMATOID ARTHRITIS
     Route: 042
     Dates: start: 201307, end: 201307
  2. PROLIA [Concomitant]
     Route: 065
  3. FINASTERIDE [Concomitant]
     Route: 065
  4. MELOXICAM [Concomitant]
     Route: 065
  5. SPIRIVA [Concomitant]
     Route: 065
  6. ZYPREXA [Concomitant]
     Route: 065
  7. WELLBUTRIN XL [Concomitant]
     Route: 065
  8. AZATHIOPRINE [Concomitant]
     Route: 065
  9. PROZAC [Concomitant]
     Route: 065

REACTIONS (21)
  - Deafness [Unknown]
  - Swelling [Unknown]
  - Weight decreased [Unknown]
  - Poor quality sleep [Unknown]
  - Dry mouth [Unknown]
  - Tinnitus [Unknown]
  - Dyspnoea [Unknown]
  - Chronic obstructive pulmonary disease [Unknown]
  - Prostatic disorder [Unknown]
  - Dysuria [Unknown]
  - Musculoskeletal stiffness [Unknown]
  - Nodule [Unknown]
  - Pain in extremity [Unknown]
  - Restless legs syndrome [Unknown]
  - Depression [Unknown]
  - Initial insomnia [Unknown]
  - Osteoporosis [Unknown]
  - Arthralgia [Unknown]
  - Joint range of motion decreased [Unknown]
  - Arthralgia [Unknown]
  - Local swelling [Unknown]
